FAERS Safety Report 7786714-4 (Version None)
Quarter: 2011Q3

REPORT INFORMATION
  Report Type: 
  Country: None (occurrence: None)
  Receive Date: 20110929
  Receipt Date: 20110926
  Transmission Date: 20111222
  Serious: Yes (Other)
  Sender: FDA-Public Use
  Company Number: US-PFIZER INC-2011229049

PATIENT
  Sex: Female
  Weight: 69.8 kg

DRUGS (3)
  1. EFFEXOR XR [Suspect]
     Indication: DEPRESSION
     Dosage: 150 MG, 3X/DAY
     Route: 048
     Dates: start: 20110501
  2. WELLBUTRIN [Concomitant]
     Dosage: UNK
  3. EFFEXOR XR [Suspect]
     Indication: ANXIETY

REACTIONS (2)
  - SPONDYLITIS [None]
  - CONTUSION [None]
